FAERS Safety Report 7907252-1 (Version None)
Quarter: 2011Q4

REPORT INFORMATION
  Report Type: 
  Country: None (occurrence: None)
  Receive Date: 20111109
  Receipt Date: 20111109
  Transmission Date: 20120403
  Serious: Yes (Hospitalization)
  Sender: FDA-Public Use
  Company Number: None

PATIENT
  Sex: Male
  Weight: 15.1 kg

DRUGS (4)
  1. G-CSF  (FILGRASTIM, AMGEN) [Suspect]
     Dosage: 1120 MG
  2. ETOPOSIDE [Suspect]
     Dosage: 824 MG
  3. MELPHALAN HYDROCHLORIDE [Suspect]
     Dosage: 129 MG
  4. CARBOPLATIN [Suspect]
     Dosage: 1040 MG

REACTIONS (8)
  - CAECITIS [None]
  - NEUTROPENIC SEPSIS [None]
  - ABDOMINAL TENDERNESS [None]
  - PYREXIA [None]
  - HYPOTENSION [None]
  - RESPIRATORY DISTRESS [None]
  - ABDOMINAL DISTENSION [None]
  - STOMATITIS [None]
